FAERS Safety Report 11939368 (Version 4)
Quarter: 2016Q1

REPORT INFORMATION
  Report Type: Spontaneous
  Country: BR (occurrence: BR)
  Receive Date: 20160122
  Receipt Date: 20160204
  Transmission Date: 20160526
  Serious: Yes (Other)
  Sender: FDA-Public Use
  Company Number: BR-PFIZER INC-2016029652

PATIENT
  Age: 55 Year
  Sex: Female
  Weight: 74 kg

DRUGS (2)
  1. PREGABALINA TEUTO [Suspect]
     Active Substance: PREGABALIN
     Indication: ARTHRALGIA
     Dosage: 75 MG, 2X/DAY (EVERY 12 HOURS)
     Dates: start: 20160116, end: 20160118
  2. CELEBRA [Concomitant]
     Active Substance: CELECOXIB
     Indication: ARTHRALGIA
     Dosage: UNK, 2X/DAY

REACTIONS (6)
  - Product use issue [Unknown]
  - Mental impairment [Recovered/Resolved]
  - Erythema [Recovered/Resolved]
  - Euphoric mood [Recovered/Resolved]
  - Speech disorder [Recovered/Resolved]
  - Insomnia [Recovered/Resolved]

NARRATIVE: CASE EVENT DATE: 20160116
